FAERS Safety Report 24303129 (Version 1)
Quarter: 2024Q3

REPORT INFORMATION
  Report Type: Spontaneous
  Country: FR (occurrence: FR)
  Receive Date: 20240910
  Receipt Date: 20240910
  Transmission Date: 20241016
  Serious: Yes (Life-Threatening, Hospitalization, Disabling)
  Sender: HARMONY BIOSCIENCES
  Company Number: FR-HARMONY BIOSCIENCES-2024HMY01802

PATIENT

DRUGS (4)
  1. PITOLISANT [Suspect]
     Active Substance: PITOLISANT
     Indication: Narcolepsy
     Dosage: 8.9 MG, 1X/DAY
     Route: 048
     Dates: start: 202406, end: 20240611
  2. PITOLISANT [Suspect]
     Active Substance: PITOLISANT
     Dosage: UNK
     Route: 048
  3. MODAFINIL [Concomitant]
     Active Substance: MODAFINIL
     Indication: Narcolepsy
     Dosage: 800 MG, 1X/DAY
     Route: 048
     Dates: end: 20240611
  4. METHADONE HYDROCHLORIDE [Concomitant]
     Active Substance: METHADONE HYDROCHLORIDE
     Indication: Drug withdrawal maintenance therapy
     Dosage: 480 MG, 1X/DAY
     Route: 048

REACTIONS (3)
  - Cerebral haematoma [Not Recovered/Not Resolved]
  - Central nervous system vasculitis [Not Recovered/Not Resolved]
  - Cerebrovascular accident [Not Recovered/Not Resolved]

NARRATIVE: CASE EVENT DATE: 20240611
